FAERS Safety Report 5442886-8 (Version None)
Quarter: 2007Q3

REPORT INFORMATION
  Report Type: 
  Country: None (occurrence: None)
  Receive Date: 20070831
  Receipt Date: 20070831
  Transmission Date: 20080115
  Serious: Yes (Hospitalization, Other)
  Sender: FDA-Public Use
  Company Number: None

PATIENT
  Sex: Female
  Weight: 113.3993 kg

DRUGS (2)
  1. VENOFER [Suspect]
     Indication: ANAEMIA
     Dosage: 500MG EVERY 14 DAY IV
     Route: 042
     Dates: start: 20070727
  2. VENOFER [Suspect]
     Indication: ANAEMIA
     Dosage: 500MG EVERY 14 DAY IV
     Route: 042
     Dates: start: 20070810

REACTIONS (4)
  - BURNING SENSATION [None]
  - INFUSION RELATED REACTION [None]
  - NAUSEA [None]
  - SENSORY DISTURBANCE [None]
